FAERS Safety Report 8776705 (Version 1)
Quarter: 2012Q4

REPORT INFORMATION
  Report Type: 
  Country: US (occurrence: US)
  Receive Date: 20120911
  Receipt Date: 20120911
  Transmission Date: 20130627
  Serious: Yes (Hospitalization)
  Sender: FDA-Public Use
  Company Number: US-009507513-2011SP030613

PATIENT

DRUGS (4)
  1. NUVARING [Suspect]
     Indication: CONTRACEPTION
     Dates: start: 200805, end: 20090822
  2. NUVARING [Suspect]
     Indication: MIGRAINE
  3. IMITREX (SUMATRIPTAN) [Concomitant]
     Indication: MIGRAINE
     Dates: start: 200308
  4. LORTAB [Suspect]

REACTIONS (9)
  - Deep vein thrombosis [Recovering/Resolving]
  - Hypercoagulation [Unknown]
  - Mental disorder [Unknown]
  - Family stress [Not Recovered/Not Resolved]
  - Insomnia [Unknown]
  - Anxiety [Unknown]
  - Cellulitis [Unknown]
  - Dysmenorrhoea [Unknown]
  - Chest pain [Unknown]
